FAERS Safety Report 4963836-4 (Version None)
Quarter: 2006Q1

REPORT INFORMATION
  Report Type: 
  Country: None (occurrence: None)
  Receive Date: 20060330
  Receipt Date: 20060314
  Transmission Date: 20060701
  Serious: Yes (Congenital Anomaly)
  Sender: FDA-Public Use
  Company Number: 8011167

PATIENT
  Sex: Male
  Weight: 3.636 kg

DRUGS (4)
  1. KEPPRA [Suspect]
     Indication: EPILEPSY
     Dosage: 1000 MG, TRP
     Route: 064
     Dates: start: 20050301, end: 20050615
  2. KEPPRA [Suspect]
     Indication: EPILEPSY
     Dosage: 1500 MG TRP
     Route: 064
     Dates: start: 20050616, end: 20050815
  3. KEPPRA [Suspect]
     Indication: EPILEPSY
     Dosage: 2000 MG TRP
     Route: 064
     Dates: start: 20050816, end: 20051209
  4. FOLATE [Concomitant]
     Route: 064

REACTIONS (3)
  - DRUG EXPOSURE DURING PREGNANCY [None]
  - PREGNANCY [None]
  - ULTRASOUND ANTENATAL SCREEN ABNORMAL [None]
